FAERS Safety Report 8138246-1 (Version None)
Quarter: 2012Q1

REPORT INFORMATION
  Report Type: 
  Country: None (occurrence: None)
  Receive Date: 20120215
  Receipt Date: 20120215
  Transmission Date: 20120608
  Serious: Yes (Hospitalization)
  Sender: FDA-Public Use
  Company Number: DE-ABBOTT-12P-062-0892697-00

PATIENT
  Sex: Male

DRUGS (2)
  1. HUMIRA [Suspect]
     Indication: PSORIASIS
     Route: 058
     Dates: start: 20110919, end: 20111031
  2. HUMIRA [Suspect]
     Route: 058
     Dates: start: 20111201

REACTIONS (3)
  - PSORIASIS [None]
  - ARTHROPATHY [None]
  - LABORATORY TEST ABNORMAL [None]
